FAERS Safety Report 13258702 (Version 1)
Quarter: 2017Q1

REPORT INFORMATION
  Report Type: Spontaneous
  Country: US (occurrence: US)
  Receive Date: 20170222
  Receipt Date: 20170222
  Transmission Date: 20170428
  Serious: Yes (Hospitalization, Other)
  Sender: FDA-Public Use
  Company Number: US-AUROBINDO-AUR-APL-2016-13666

PATIENT
  Age: 60 Year
  Sex: Male
  Weight: 114 kg

DRUGS (5)
  1. CHLORHEXIDINE [Concomitant]
     Active Substance: CHLORHEXIDINE
     Indication: PRODUCT USED FOR UNKNOWN INDICATION
     Dosage: UNK
     Route: 065
  2. ROPIVACAINE HYDROCHLORIDE 0.2% [Suspect]
     Active Substance: ROPIVACAINE HYDROCHLORIDE
     Indication: NERVE BLOCK
     Dosage: 8 ML, NO BOLUS OPTION
     Route: 065
  3. BUPIVACAINE HYDROCHLORIDE 0.75% (7.5 MG/ML) [Suspect]
     Active Substance: BUPIVACAINE HYDROCHLORIDE
     Indication: SPINAL ANAESTHESIA
     Dosage: 0.75 %, 12 MG
  4. LIDOCAINE INJECTION [Suspect]
     Active Substance: LIDOCAINE
     Indication: NERVE BLOCK
     Dosage: UNK, 10- TO 15-ML BOLUS
     Route: 065
  5. EPINEPHRINE. [Concomitant]
     Active Substance: EPINEPHRINE
     Indication: PRODUCT USED FOR UNKNOWN INDICATION
     Dosage: UNK, 2.5 MCG/ML; BOLUS
     Route: 065

REACTIONS (4)
  - Myositis [Recovering/Resolving]
  - Deep vein thrombosis [None]
  - Toxicity to various agents [None]
  - Peripheral swelling [Recovered/Resolved]
